FAERS Safety Report 7341894-X (Version None)
Quarter: 2011Q1

REPORT INFORMATION
  Report Type: 
  Country: None (occurrence: None)
  Receive Date: 20110309
  Receipt Date: 20110127
  Transmission Date: 20110831
  Serious: Yes (Hospitalization)
  Sender: FDA-Public Use
  Company Number: JP-PFIZER INC-2011023378

PATIENT
  Age: 79 Year
  Sex: Male

DRUGS (6)
  1. AMARYL [Concomitant]
     Dosage: UNK
     Dates: start: 20101130, end: 20101221
  2. PREDONINE [Concomitant]
     Dosage: UNK
     Dates: start: 20101120
  3. TAKEPRON [Concomitant]
     Dosage: UNK
     Dates: start: 20101115
  4. KLARICID [Concomitant]
     Dosage: UNK
     Dates: start: 20101022
  5. MIGLITOL [Suspect]
     Indication: DIABETES MELLITUS
     Dosage: 150 MG, UNK
     Route: 048
     Dates: start: 20101128, end: 20101221
  6. AMARYL [Concomitant]
     Dosage: UNK
     Dates: start: 20110108

REACTIONS (2)
  - ABDOMINAL PAIN UPPER [None]
  - PNEUMATOSIS INTESTINALIS [None]
